FAERS Safety Report 4448845-6 (Version None)
Quarter: 2004Q3

REPORT INFORMATION
  Report Type: 
  Country: None (occurrence: None)
  Receive Date: 20040909
  Receipt Date: 20040825
  Transmission Date: 20050211
  Serious: Yes (Other)
  Sender: FDA-Public Use
  Company Number: 234313K04USA

PATIENT
  Age: 43 Year
  Sex: Female

DRUGS (2)
  1. REBIF [Suspect]
     Indication: MULTIPLE SCLEROSIS
     Dosage: 44 MCG, 3 IN 1 WEEKS
     Dates: start: 20021028
  2. ACTH [Suspect]
     Dosage: INTRA-MUSCULAR
     Route: 030

REACTIONS (3)
  - INJECTION SITE CELLULITIS [None]
  - INJECTION SITE NECROSIS [None]
  - INJECTION SITE PAIN [None]
